FAERS Safety Report 25440248 (Version 2)
Quarter: 2025Q3

REPORT INFORMATION
  Report Type: Spontaneous
  Country: US (occurrence: US)
  Receive Date: 20250616
  Receipt Date: 20250812
  Transmission Date: 20251021
  Serious: Yes (Hospitalization, Other)
  Sender: ABBVIE
  Company Number: US-ABBVIE-6321323

PATIENT
  Age: 65 Year
  Sex: Female
  Weight: 84 kg

DRUGS (21)
  1. HUMIRA [Suspect]
     Active Substance: ADALIMUMAB
     Indication: Rheumatoid arthritis
     Dosage: FORM STRENGTH: 40 MILLIGRAM
     Route: 058
     Dates: start: 202401, end: 20250514
  2. FLUTICASONE [Concomitant]
     Active Substance: FLUTICASONE
     Indication: Sleep disorder
  3. ALBUTEROL [Concomitant]
     Active Substance: ALBUTEROL
     Indication: Product used for unknown indication
     Route: 048
  4. CITALOPRAM [Concomitant]
     Active Substance: CITALOPRAM
     Indication: Product used for unknown indication
  5. Doxylamine succinate generichealth [Concomitant]
     Indication: Product used for unknown indication
  6. FOLIC ACID [Concomitant]
     Active Substance: FOLIC ACID
     Indication: Product used for unknown indication
  7. METHOTREXATE [Concomitant]
     Active Substance: METHOTREXATE
     Indication: Product used for unknown indication
     Dates: start: 20190107
  8. One a day proactive 65+ for men + women [Concomitant]
     Indication: Product used for unknown indication
  9. OXYCODONE [Concomitant]
     Active Substance: OXYCODONE
     Indication: Product used for unknown indication
     Dosage: AS NEEDED
     Route: 048
     Dates: start: 20250217, end: 20250520
  10. RISEDRONATE SODIUM [Concomitant]
     Active Substance: RISEDRONATE SODIUM
     Indication: Product used for unknown indication
     Dosage: BEFORE BREAKFAST
     Route: 048
     Dates: start: 20220426
  11. TRAMADOL [Concomitant]
     Active Substance: TRAMADOL
     Indication: Pain
     Dosage: AS NEEDED
     Route: 048
     Dates: start: 20250217
  12. TYLENOL [Concomitant]
     Active Substance: ACETAMINOPHEN
     Indication: Product used for unknown indication
     Route: 048
  13. VITAMIN D3 [Concomitant]
     Active Substance: CHOLECALCIFEROL
     Indication: Product used for unknown indication
     Route: 048
  14. VITAMIN C [Concomitant]
     Active Substance: ASCORBIC ACID
     Indication: Product used for unknown indication
  15. Biotine [Concomitant]
     Indication: Product used for unknown indication
     Route: 048
  16. ZINC [Concomitant]
     Active Substance: ZINC
     Indication: Product used for unknown indication
  17. Immuneti [Concomitant]
     Indication: Product used for unknown indication
  18. ECHINACEA [Concomitant]
     Active Substance: ECHINACEA, UNSPECIFIED
     Indication: Product used for unknown indication
  19. VITAMIN B12 [Concomitant]
     Active Substance: CYANOCOBALAMIN
     Indication: Product used for unknown indication
  20. COENZYME Q10 [Concomitant]
     Active Substance: DIETARY SUPPLEMENT\UBIDECARENONE
     Indication: Product used for unknown indication
  21. Goji berry [Concomitant]
     Indication: Product used for unknown indication

REACTIONS (32)
  - Hypokinesia [Unknown]
  - Myocardial infarction [Recovering/Resolving]
  - Blood glucose increased [Recovering/Resolving]
  - Hypertension [Unknown]
  - Chronic obstructive pulmonary disease [Unknown]
  - Rheumatoid arthritis [Unknown]
  - Obstructive sleep apnoea syndrome [Unknown]
  - Red blood cell count decreased [Recovered/Resolved]
  - Mean cell volume increased [Recovered/Resolved]
  - Monocyte percentage increased [Unknown]
  - Neutrophil count increased [Unknown]
  - Monocyte count increased [Unknown]
  - Troponin increased [Recovering/Resolving]
  - Troponin increased [Unknown]
  - Myocardial infarction [Unknown]
  - Troponin increased [Unknown]
  - Arteriosclerosis coronary artery [Unknown]
  - Diastolic dysfunction [Unknown]
  - Incision site pain [Not Recovered/Not Resolved]
  - Chills [Unknown]
  - Pyrexia [Unknown]
  - Sensory loss [Unknown]
  - Pallor [Unknown]
  - Urticaria [Unknown]
  - Stenosis [Unknown]
  - Coronary ostial stenosis [Unknown]
  - Blood urea increased [Not Recovered/Not Resolved]
  - Blood calcium decreased [Recovered/Resolved]
  - White blood cell count increased [Unknown]
  - Blood creatinine increased [Not Recovered/Not Resolved]
  - Skin discolouration [Unknown]
  - Coronary artery occlusion [Unknown]

NARRATIVE: CASE EVENT DATE: 20250101
